FAERS Safety Report 5706197-5 (Version None)
Quarter: 2008Q2

REPORT INFORMATION
  Report Type: 
  Country: None (occurrence: None)
  Receive Date: 20080415
  Receipt Date: 20080403
  Transmission Date: 20081010
  Serious: Yes (Other)
  Sender: FDA-Public Use
  Company Number: ES-SANOFI-SYNTHELABO-A01200804077

PATIENT
  Sex: Male

DRUGS (2)
  1. STOMACHE PROTECTOR [Concomitant]
     Dosage: UNK
  2. ELIGARD [Suspect]
     Indication: PROSTATE CANCER
     Route: 058
     Dates: start: 20071204, end: 20071204

REACTIONS (2)
  - HYPERSENSITIVITY [None]
  - RASH GENERALISED [None]
